FAERS Safety Report 9021344 (Version 1)
Quarter: 2013Q1

REPORT INFORMATION
  Report Type: Spontaneous
  Country: US (occurrence: US)
  Receive Date: 20130119
  Receipt Date: 20130119
  Transmission Date: 20140127
  Serious: No
  Sender: FDA-Public Use
  Company Number: US-ALLERGAN-1202831US

PATIENT
  Age: 86 Year
  Sex: Male

DRUGS (1)
  1. BOTOX? [Suspect]
     Indication: PRODUCT USED FOR UNKNOWN INDICATION
     Dosage: 200 UNITS, SINGLE
     Route: 030
     Dates: start: 20120227, end: 20120227

REACTIONS (4)
  - Dystonia [Unknown]
  - Dysarthria [Unknown]
  - Dysarthria [Unknown]
  - Muscular weakness [Unknown]
